FAERS Safety Report 25928528 (Version 1)
Quarter: 2025Q4

REPORT INFORMATION
  Report Type: Spontaneous
  Country: GB (occurrence: GB)
  Receive Date: 20251016
  Receipt Date: 20251016
  Transmission Date: 20260117
  Serious: Yes (Death, Hospitalization, Other)
  Sender: DEXCEL LTD.
  Company Number: None

PATIENT
  Age: 56 Year
  Sex: Male

DRUGS (6)
  1. PIPERACILLIN SODIUM\TAZOBACTAM SODIUM [Suspect]
     Active Substance: PIPERACILLIN SODIUM\TAZOBACTAM SODIUM
  2. FUROSEMIDE [Suspect]
     Active Substance: FUROSEMIDE
  3. OMEPRAZOLE [Suspect]
     Active Substance: OMEPRAZOLE
  4. MIRTAZAPINE [Concomitant]
     Active Substance: MIRTAZAPINE
  5. BECLOMETHASONE\FORMOTEROL [Concomitant]
     Active Substance: BECLOMETHASONE\FORMOTEROL
  6. ALBUTEROL [Concomitant]
     Active Substance: ALBUTEROL

REACTIONS (4)
  - Toxic epidermal necrolysis [Fatal]
  - Acute kidney injury [Unknown]
  - Bone marrow failure [Not Recovered/Not Resolved]
  - Rash [Not Recovered/Not Resolved]
